FAERS Safety Report 9804685 (Version 2)
Quarter: 2014Q1

REPORT INFORMATION
  Report Type: Spontaneous
  Country: US (occurrence: US)
  Receive Date: 20140108
  Receipt Date: 20140108
  Transmission Date: 20141002
  Serious: Yes (Hospitalization)
  Sender: FDA-Public Use
  Company Number: US-B.I. PHARMACEUTICALS,INC./RIDGEFIELD-2013-BI-21835BP

PATIENT
  Sex: Male
  Weight: 90.72 kg

DRUGS (6)
  1. PRADAXA [Suspect]
     Indication: ATRIAL FIBRILLATION
     Dosage: 300 MG
     Dates: start: 20110901, end: 20120203
  2. DILTIAZEM [Concomitant]
     Dosage: 180 MG
  3. AMBIEN [Concomitant]
     Dosage: 10 MG
     Route: 048
  4. COLACE [Concomitant]
     Indication: BOWEL PREPARATION
     Dosage: 250 MG
  5. SENNA [Concomitant]
     Indication: BOWEL PREPARATION
  6. DULCOLAX (BISACODYL) [Concomitant]
     Indication: BOWEL PREPARATION

REACTIONS (3)
  - Upper gastrointestinal haemorrhage [Unknown]
  - Haemorrhagic anaemia [Unknown]
  - Coagulopathy [Unknown]
